FAERS Safety Report 9384677 (Version 2)
Quarter: 2013Q3

REPORT INFORMATION
  Report Type: Spontaneous
  Country: DE (occurrence: DE)
  Receive Date: 20130705
  Receipt Date: 20130711
  Transmission Date: 20140515
  Serious: Yes (Congenital Anomaly)
  Sender: FDA-Public Use
  Company Number: DE-PFIZER INC-2013197157

PATIENT
  Sex: Female

DRUGS (5)
  1. RAMILICH [Suspect]
     Indication: HYPERTENSION
     Dosage: 2.5 MG, DAILY
     Route: 064
     Dates: start: 2011, end: 20120816
  2. HEPARIN [Concomitant]
     Indication: THROMBOSIS PROPHYLAXIS
     Dosage: UNK
     Route: 064
     Dates: start: 201201, end: 20120816
  3. L-THYROXIN [Concomitant]
     Indication: HYPOTHYROIDISM
     Dosage: UNK
     Route: 064
     Dates: end: 20120816
  4. MISOPROSTOL [Concomitant]
     Indication: LABOUR INDUCTION
     Dosage: UNK
     Route: 064
     Dates: start: 20120813, end: 20120815
  5. SIMVASTATIN [Concomitant]
     Dosage: UNK
     Route: 064

REACTIONS (3)
  - Foetal exposure timing unspecified [Recovered/Resolved]
  - Cardiac aneurysm [Recovered/Resolved]
  - Ventricular septal defect [Recovered/Resolved]
